FAERS Safety Report 6645901-9 (Version None)
Quarter: 2010Q1

REPORT INFORMATION
  Report Type: 
  Country: None (occurrence: None)
  Receive Date: 20100323
  Receipt Date: 20100315
  Transmission Date: 20100710
  Serious: Yes (Other)
  Sender: FDA-Public Use
  Company Number: JP-BRISTOL-MYERS SQUIBB COMPANY-15019979

PATIENT
  Age: 39 Year
  Sex: Female

DRUGS (2)
  1. ABILIFY [Suspect]
     Indication: SCHIZOPHRENIA
     Route: 048
     Dates: start: 20090731, end: 20100212
  2. AMOBAN [Concomitant]
     Dosage: TABS
     Dates: start: 20090731, end: 20100212

REACTIONS (2)
  - ABORTION MISSED [None]
  - PREGNANCY [None]
